FAERS Safety Report 23849253 (Version 2)
Quarter: 2024Q2

REPORT INFORMATION
  Report Type: Spontaneous
  Country: US (occurrence: US)
  Receive Date: 20240513
  Receipt Date: 20240514
  Transmission Date: 20240715
  Serious: No
  Sender: FDA-Public Use
  Company Number: US-002147023-NVSC2024US099599

PATIENT
  Sex: Male

DRUGS (1)
  1. MEKINIST [Suspect]
     Active Substance: TRAMETINIB DIMETHYL SULFOXIDE
     Indication: Langerhans^ cell histiocytosis
     Dosage: 6 ML (EVERY DAY)
     Route: 048
     Dates: start: 202402

REACTIONS (2)
  - Rash [Unknown]
  - Dry skin [Unknown]
